FAERS Safety Report 12160099 (Version 1)
Quarter: 2016Q1

REPORT INFORMATION
  Report Type: Spontaneous
  Country: JP (occurrence: JP)
  Receive Date: 20160308
  Receipt Date: 20160308
  Transmission Date: 20160526
  Serious: Yes (Other)
  Sender: FDA-Public Use
  Company Number: JP-PFIZER INC-2016134278

PATIENT
  Sex: Male

DRUGS (1)
  1. CHAMPIX [Suspect]
     Active Substance: VARENICLINE TARTRATE
     Route: 048

REACTIONS (5)
  - Drug ineffective [Unknown]
  - Muscle spasms [Unknown]
  - Condition aggravated [Unknown]
  - Schizophrenia [Unknown]
  - Altered state of consciousness [Unknown]
